FAERS Safety Report 5044539-7 (Version None)
Quarter: 2006Q2

REPORT INFORMATION
  Report Type: 
  Country: None (occurrence: None)
  Receive Date: 20060629
  Receipt Date: 20060619
  Transmission Date: 20061013
  Serious: Yes (Hospitalization, Other)
  Sender: FDA-Public Use
  Company Number: 2003117551

PATIENT
  Age: 78 Year
  Sex: Male
  Weight: 60 kg

DRUGS (4)
  1. LIPITOR [Suspect]
     Indication: HYPERCHOLESTEROLAEMIA
     Dosage: 20 MG (20 MG, 1 IN 1 D) ORAL
     Route: 048
     Dates: start: 20011101, end: 20020101
  2. CLOPIDOGREL [Concomitant]
  3. LANSOPRAZOLE [Concomitant]
  4. ISOSORBIDE [Concomitant]

REACTIONS (5)
  - CHROMATURIA [None]
  - FAECES PALE [None]
  - JAUNDICE [None]
  - LIVER FUNCTION TEST ABNORMAL [None]
  - PRURITUS [None]
